FAERS Safety Report 5193646-7 (Version None)
Quarter: 2006Q4

REPORT INFORMATION
  Report Type: 
  Country: None (occurrence: None)
  Receive Date: 20061213
  Receipt Date: 20061129
  Transmission Date: 20070319
  Serious: Yes (Hospitalization)
  Sender: FDA-Public Use
  Company Number: WSDF_00590

PATIENT
  Age: 52 Year
  Sex: Female
  Weight: 62.7 kg

DRUGS (2)
  1. WINRHO SDF [Suspect]
     Indication: PLATELET COUNT DECREASED
     Dosage: 49.76 UG/KG ONCE IV
     Route: 042
     Dates: start: 20061019, end: 20061019
  2. DEMEROL [Concomitant]

REACTIONS (7)
  - ATELECTASIS [None]
  - BACK PAIN [None]
  - CHILLS [None]
  - PLATELET COUNT INCREASED [None]
  - PULMONARY EMBOLISM [None]
  - PULMONARY OEDEMA [None]
  - TREMOR [None]
